FAERS Safety Report 8480083-2 (Version None)
Quarter: 2012Q2

REPORT INFORMATION
  Report Type: 
  Country: None (occurrence: None)
  Receive Date: 20120629
  Receipt Date: 20120619
  Transmission Date: 20120825
  Serious: Yes (Other)
  Sender: FDA-Public Use
  Company Number: GB-ELI_LILLY_AND_COMPANY-GB201206006306

PATIENT
  Age: 83 Year
  Sex: Female

DRUGS (2)
  1. DULOXETINE HYDROCHLORIDE [Suspect]
     Indication: DEPRESSION
     Dosage: 30 MG, UNK
     Route: 048
     Dates: start: 20110701, end: 20111001
  2. DULOXETINE HYDROCHLORIDE [Suspect]
     Dosage: 60 MG, UNK
     Route: 048
     Dates: start: 20111001, end: 20120503

REACTIONS (2)
  - PURPURA [None]
  - VASCULITIS [None]
